FAERS Safety Report 5675332-X (Version None)
Quarter: 2008Q1

REPORT INFORMATION
  Report Type: 
  Country: None (occurrence: None)
  Receive Date: 20080320
  Receipt Date: 20080318
  Transmission Date: 20080703
  Serious: Yes (Other)
  Sender: FDA-Public Use
  Company Number: US-BOEHRINGER INGELHEIM GMBH, GERMANY-2008-BP-04066RO

PATIENT
  Age: 4 Year
  Weight: 16 kg

DRUGS (3)
  1. MIDAZOLAM HCL [Suspect]
     Indication: INDUCTION OF ANAESTHESIA
     Route: 048
  2. MIDAZOLAM HCL [Suspect]
     Route: 045
  3. CLONIDINE [Concomitant]
     Indication: INDUCTION OF ANAESTHESIA
     Route: 045

REACTIONS (1)
  - ANAESTHETIC COMPLICATION [None]
